FAERS Safety Report 8443538-2 (Version None)
Quarter: 2012Q2

REPORT INFORMATION
  Report Type: 
  Country: None (occurrence: None)
  Receive Date: 20120618
  Receipt Date: 20120607
  Transmission Date: 20120825
  Serious: Yes (Hospitalization, Other)
  Sender: FDA-Public Use
  Company Number: CA-JNJFOC-20120604112

PATIENT
  Sex: Male

DRUGS (1)
  1. REMICADE [Suspect]
     Indication: CROHN'S DISEASE
     Dosage: HAD 1-2 DOSES
     Route: 042
     Dates: start: 20110701, end: 20110101

REACTIONS (3)
  - MYALGIA [None]
  - PULMONARY THROMBOSIS [None]
  - ILEOSTOMY [None]
